FAERS Safety Report 7804569-6 (Version None)
Quarter: 2011Q4

REPORT INFORMATION
  Report Type: 
  Country: None (occurrence: None)
  Receive Date: 20111010
  Receipt Date: 20111003
  Transmission Date: 20120403
  Serious: Yes (Other)
  Sender: FDA-Public Use
  Company Number: US-PFIZER INC-2011189146

PATIENT
  Sex: Female
  Weight: 58.957 kg

DRUGS (1)
  1. IBUPROFEN (ADVIL) [Suspect]
     Indication: MUSCLE SPASMS
     Dosage: 200 MG, 2X/DAY
     Route: 048
     Dates: start: 20110810, end: 20110811

REACTIONS (5)
  - OEDEMA MOUTH [None]
  - BLOOD PRESSURE INCREASED [None]
  - HYPERSENSITIVITY [None]
  - SWOLLEN TONGUE [None]
  - SWELLING FACE [None]
